FAERS Safety Report 13787506 (Version 1)
Quarter: 2017Q3

REPORT INFORMATION
  Report Type: Spontaneous
  Country: US (occurrence: US)
  Receive Date: 20170725
  Receipt Date: 20170725
  Transmission Date: 20171127
  Serious: No
  Sender: FDA-Public Use
  Company Number: US-JNJFOC-20170701971

PATIENT
  Age: 36 Year
  Sex: Male
  Weight: 83.92 kg

DRUGS (4)
  1. MAXIUM STRENGTH PEPCID AC [Concomitant]
     Indication: DYSPEPSIA
     Route: 065
     Dates: start: 20170703
  2. TYLENOL 8 HR ARTHRITIS PAIN [Suspect]
     Active Substance: ACETAMINOPHEN
     Indication: TOOTHACHE
     Route: 048
     Dates: start: 20170703, end: 20170703
  3. MAXIUM STRENGTH PEPCID AC [Concomitant]
     Indication: DIARRHOEA
     Route: 065
     Dates: start: 20170703
  4. TYLENOL 8 HR ARTHRITIS PAIN [Suspect]
     Active Substance: ACETAMINOPHEN
     Indication: HEADACHE
     Route: 048
     Dates: start: 20170703, end: 20170703

REACTIONS (2)
  - Incorrect dose administered [Unknown]
  - Drug ineffective [Unknown]

NARRATIVE: CASE EVENT DATE: 20170703
